FAERS Safety Report 13030663 (Version 2)
Quarter: 2017Q1

REPORT INFORMATION
  Report Type: Spontaneous
  Country: US (occurrence: US)
  Receive Date: 20161215
  Receipt Date: 20170112
  Transmission Date: 20170428
  Serious: Yes (Death, Other)
  Sender: FDA-Public Use
  Company Number: US-009507513-1601USA007584

PATIENT
  Age: 56 Year
  Sex: Male

DRUGS (1)
  1. KEYTRUDA [Suspect]
     Active Substance: PEMBROLIZUMAB
     Indication: EPIGLOTTIC CARCINOMA
     Dosage: UNK
     Route: 041
     Dates: start: 201508, end: 20160414

REACTIONS (4)
  - Neoplasm [Fatal]
  - Neoplasm malignant [Fatal]
  - Drug dose omission [Unknown]
  - Product use issue [Unknown]

NARRATIVE: CASE EVENT DATE: 20160423
